FAERS Safety Report 18490959 (Version 1)
Quarter: 2020Q4

REPORT INFORMATION
  Report Type: Report from Study
  Country: US (occurrence: US)
  Receive Date: 20201111
  Receipt Date: 20201111
  Transmission Date: 20210114
  Serious: Yes (Other)
  Sender: FDA-Public Use
  Company Number: US-JNJFOC-20200517667

PATIENT
  Age: 18 Year
  Sex: Female
  Weight: 68.1 kg

DRUGS (2)
  1. CYMBALTA [Concomitant]
     Active Substance: DULOXETINE HYDROCHLORIDE
     Indication: FIBROMYALGIA
     Route: 065
  2. TREMFYA [Suspect]
     Active Substance: GUSELKUMAB
     Indication: CROHN^S DISEASE
     Route: 058
     Dates: start: 20200513

REACTIONS (7)
  - Off label use [Unknown]
  - Injection site pain [Unknown]
  - Product use in unapproved indication [Unknown]
  - Loss of consciousness [Not Recovered/Not Resolved]
  - Product dose omission issue [Unknown]
  - Device issue [Unknown]
  - Crohn^s disease [Not Recovered/Not Resolved]

NARRATIVE: CASE EVENT DATE: 20200513
